FAERS Safety Report 12079567 (Version 2)
Quarter: 2016Q1

REPORT INFORMATION
  Report Type: Spontaneous
  Country: US (occurrence: US)
  Receive Date: 20160216
  Receipt Date: 20160216
  Transmission Date: 20160526
  Serious: Yes (Hospitalization)
  Sender: FDA-Public Use
  Company Number: PHHY2016US019277

PATIENT
  Sex: Male
  Weight: 80 kg

DRUGS (24)
  1. MIDAZOLAM [Interacting]
     Active Substance: MIDAZOLAM\MIDAZOLAM HYDROCHLORIDE
     Dosage: 4 MG, UNK
     Route: 042
  2. ONDANSETRON [Interacting]
     Active Substance: ONDANSETRON
     Indication: PRODUCT USED FOR UNKNOWN INDICATION
     Dosage: 4 MG, UNK
     Route: 042
  3. METOCLOPRAMIDE. [Interacting]
     Active Substance: METOCLOPRAMIDE
     Indication: PRODUCT USED FOR UNKNOWN INDICATION
     Dosage: 10 MG
     Route: 042
  4. FLUOXETINE [Interacting]
     Active Substance: FLUOXETINE HYDROCHLORIDE
     Dosage: 10 MG, UNK
     Route: 065
  5. FENTANYL. [Interacting]
     Active Substance: FENTANYL
     Dosage: 50 UG, UNK
     Route: 042
  6. HALOPERIDOL. [Interacting]
     Active Substance: HALOPERIDOL
     Indication: AGITATION
     Dosage: 1 MG, UNK
     Route: 042
  7. ERTAPENEM [Interacting]
     Active Substance: ERTAPENEM
     Indication: ANTIBIOTIC PROPHYLAXIS
     Route: 065
  8. FENTANYL. [Interacting]
     Active Substance: FENTANYL
     Indication: GENERAL ANAESTHESIA
     Dosage: 100 G IN DIVIDED DOSES
     Route: 042
  9. METHYLENE BLUE. [Interacting]
     Active Substance: METHYLENE BLUE
     Indication: PRODUCT USED FOR UNKNOWN INDICATION
     Dosage: 100 MG, UNK
     Route: 042
  10. DANTROLENE [Concomitant]
     Active Substance: DANTROLENE
     Indication: PRODUCT USED FOR UNKNOWN INDICATION
     Dosage: 110 MG IN 2 DIVIDED DOSES
     Route: 042
  11. CYPROHEPTADINE. [Concomitant]
     Active Substance: CYPROHEPTADINE
     Indication: PRODUCT USED FOR UNKNOWN INDICATION
     Dosage: 12 MG, UNK
     Route: 065
  12. GLYCOPYRRONIUM BROMIDE [Suspect]
     Active Substance: GLYCOPYRRONIUM
     Indication: NEUROMUSCULAR BLOCKADE REVERSAL
     Dosage: 0.6 MG, UNK
     Route: 042
  13. CISATRACURIUM BESYLATE. [Interacting]
     Active Substance: CISATRACURIUM BESYLATE
     Indication: NEUROMYOPATHY
     Dosage: 2-8 MG IN DIVIDED DOSES
     Route: 042
  14. METRONIDAZOLE. [Interacting]
     Active Substance: METRONIDAZOLE
     Indication: PROPHYLAXIS
     Dosage: 500 MG, UNK
     Route: 042
  15. PROPOFOL. [Interacting]
     Active Substance: PROPOFOL
     Indication: GENERAL ANAESTHESIA
     Dosage: 100 MG, UNK
     Route: 042
  16. NEOSTIGMINE [Interacting]
     Active Substance: NEOSTIGMINE
     Indication: NEUROMUSCULAR BLOCKADE REVERSAL
     Dosage: 5 MG, UNK
     Route: 042
  17. SEVOFLURANE. [Interacting]
     Active Substance: SEVOFLURANE
     Indication: ANAESTHESIA
     Route: 065
  18. CYPROHEPTADINE. [Concomitant]
     Active Substance: CYPROHEPTADINE
     Dosage: 8 MG, Q6H
     Route: 065
  19. HYDROMORPHONE [Interacting]
     Active Substance: HYDROMORPHONE
     Indication: NEUROMYOPATHY
     Dosage: 5 MG IN DIVIDED DOSES
     Route: 042
  20. ETOMIDATE. [Interacting]
     Active Substance: ETOMIDATE
     Indication: GENERAL ANAESTHESIA
     Dosage: 20 MG, UNK
     Route: 042
  21. SUCCINYLCHOLINE [Interacting]
     Active Substance: SUCCINYLCHOLINE
     Indication: GENERAL ANAESTHESIA
     Dosage: 100 MG, UNK
     Route: 065
  22. FLUOXETINE [Interacting]
     Active Substance: FLUOXETINE HYDROCHLORIDE
     Indication: DEPRESSION
     Dosage: 40 MG, QD
     Route: 065
  23. MIDAZOLAM [Interacting]
     Active Substance: MIDAZOLAM\MIDAZOLAM HYDROCHLORIDE
     Indication: PRODUCT USED FOR UNKNOWN INDICATION
     Dosage: 2 MG, UNK
     Route: 042
  24. ETOMIDATE. [Interacting]
     Active Substance: ETOMIDATE
     Dosage: 40 MG, UNK
     Route: 042

REACTIONS (10)
  - Tachycardia [Unknown]
  - Hyperreflexia [Unknown]
  - Agitation [Unknown]
  - Drug interaction [Unknown]
  - Serotonin syndrome [Unknown]
  - Hyperpyrexia [Unknown]
  - Rhabdomyolysis [Unknown]
  - Hypertension [Unknown]
  - Contusion [Unknown]
  - Trismus [Unknown]
